FAERS Safety Report 20537992 (Version 1)
Quarter: 2022Q1

REPORT INFORMATION
  Report Type: Spontaneous
  Country: US (occurrence: None)
  Receive Date: 20220301
  Receipt Date: 20220301
  Transmission Date: 20220423
  Serious: Yes (Death, Hospitalization)
  Sender: FDA-Public Use
  Company Number: None

PATIENT
  Age: 52 Year
  Sex: Female
  Weight: 103.5 kg

DRUGS (1)
  1. PRADAXA [Suspect]
     Active Substance: DABIGATRAN ETEXILATE MESYLATE
     Indication: Thrombosis prophylaxis
     Route: 048

REACTIONS (4)
  - Interstitial lung disease [None]
  - Multiple organ dysfunction syndrome [None]
  - Gastrooesophageal reflux disease [None]
  - Haematochezia [None]

NARRATIVE: CASE EVENT DATE: 20170201
